FAERS Safety Report 9847221 (Version 2)
Quarter: 2014Q2

REPORT INFORMATION
  Report Type: Spontaneous
  Country: NO (occurrence: NO)
  Receive Date: 20140127
  Receipt Date: 20140523
  Transmission Date: 20141212
  Serious: Yes (Hospitalization, Other)
  Sender: FDA-Public Use
  Company Number: NO-PFIZER INC-2014023882

PATIENT
  Age: 24 Year
  Sex: Female

DRUGS (2)
  1. CHAMPIX [Suspect]
     Indication: SMOKING CESSATION THERAPY
     Dosage: UNK
     Route: 048
     Dates: end: 201203
  2. VENTOLINE [Concomitant]
     Indication: ASTHMA
     Dosage: UNK
     Dates: start: 201202

REACTIONS (2)
  - Acute psychosis [Not Recovered/Not Resolved]
  - Bipolar disorder [Not Recovered/Not Resolved]
